FAERS Safety Report 6034354-X (Version None)
Quarter: 2009Q1

REPORT INFORMATION
  Report Type: 
  Country: None (occurrence: None)
  Receive Date: 20090108
  Receipt Date: 20081223
  Transmission Date: 20090719
  Serious: Yes (Death)
  Sender: FDA-Public Use
  Company Number: 8040741

PATIENT
  Sex: Female

DRUGS (4)
  1. HYDROCODONE BITARTRATE + ACETAMINOPHEN [Suspect]
     Dates: end: 20070101
  2. ACETAMINOPHEN [Suspect]
     Dates: end: 20070101
  3. CARISOPRODOL [Suspect]
     Dates: end: 20070101
  4. BUTALBITAL ACETAMINOPHEN AND CAFFEINE [Suspect]
     Dates: end: 20070101

REACTIONS (2)
  - COMPLETED SUICIDE [None]
  - INTENTIONAL DRUG MISUSE [None]
